FAERS Safety Report 20827822 (Version 11)
Quarter: 2022Q4

REPORT INFORMATION
  Report Type: Spontaneous
  Country: US (occurrence: None)
  Receive Date: 20220513
  Receipt Date: 20221208
  Transmission Date: 20230112
  Serious: Yes (Other)
  Sender: FDA-Public Use
  Company Number: US-ROCHE-3092135

PATIENT
  Sex: Female

DRUGS (3)
  1. ERIVEDGE [Suspect]
     Active Substance: VISMODEGIB
     Indication: Basal cell carcinoma
     Route: 048
     Dates: start: 20220414
  2. ERIVEDGE [Suspect]
     Active Substance: VISMODEGIB
     Indication: Congenital anomaly
     Route: 048
     Dates: start: 20220504
  3. ERIVEDGE [Suspect]
     Active Substance: VISMODEGIB
     Route: 048
     Dates: start: 20220509

REACTIONS (16)
  - Systemic lupus erythematosus [Unknown]
  - Diarrhoea [Unknown]
  - Fatigue [Unknown]
  - Muscle spasms [Unknown]
  - Agitation [Unknown]
  - Rheumatoid arthritis [Unknown]
  - Fibromyalgia [Unknown]
  - Myalgia [Unknown]
  - Hyperhidrosis [Unknown]
  - Alopecia [Unknown]
  - Irritability [Unknown]
  - Abdominal pain upper [Unknown]
  - Depression [Unknown]
  - Insomnia [Unknown]
  - Dysgeusia [Unknown]
  - Hypoaesthesia [Unknown]

NARRATIVE: CASE EVENT DATE: 20220510
